FAERS Safety Report 14907042 (Version 1)
Quarter: 2018Q2

REPORT INFORMATION
  Report Type: Report from Study
  Country: US (occurrence: US)
  Receive Date: 20180517
  Receipt Date: 20180517
  Transmission Date: 20180711
  Serious: Yes (Other)
  Sender: FDA-Public Use
  Company Number: US-UCBSA-2017039038

PATIENT
  Age: 43 Year
  Sex: Female

DRUGS (1)
  1. CERTOLIZUMAB PEGOL [Suspect]
     Active Substance: CERTOLIZUMAB PEGOL
     Indication: PSORIATIC ARTHROPATHY
     Dosage: AN INJECTION EVERY TWO WEEKS

REACTIONS (12)
  - Arthritis [Unknown]
  - Nasopharyngitis [Unknown]
  - Influenza [Unknown]
  - Visual impairment [Unknown]
  - Musculoskeletal discomfort [Unknown]
  - Fluid imbalance [Unknown]
  - Joint injury [Unknown]
  - Arthralgia [Unknown]
  - Arthropathy [Unknown]
  - Drug effect incomplete [Unknown]
  - Sepsis [Unknown]
  - Pain [Unknown]
